FAERS Safety Report 20702445 (Version 1)
Quarter: 2022Q2

REPORT INFORMATION
  Report Type: Spontaneous
  Country: US (occurrence: US)
  Receive Date: 20220412
  Receipt Date: 20220412
  Transmission Date: 20220721
  Serious: No
  Sender: FDA-Public Use
  Company Number: US-009507513-2204USA002414

PATIENT
  Age: 34 Year
  Sex: Female

DRUGS (3)
  1. INTEGRILIN [Suspect]
     Active Substance: EPTIFIBATIDE
     Indication: COVID-19 pneumonia
     Dosage: 180 MICROGRAM PER KILOGRAM, LOADING DOSE
     Route: 042
     Dates: start: 20200830
  2. INTEGRILIN [Suspect]
     Active Substance: EPTIFIBATIDE
     Indication: Cardiovascular event prophylaxis
     Dosage: 2 MICROGRAM PER KILOGRAM
     Route: 042
     Dates: start: 20200830, end: 20200904
  3. INSULIN NOS [Concomitant]
     Active Substance: INSULIN NOS
     Indication: Type 2 diabetes mellitus

REACTIONS (1)
  - Product use in unapproved indication [Unknown]
